FAERS Safety Report 7844370-0 (Version None)
Quarter: 2011Q4

REPORT INFORMATION
  Report Type: 
  Country: None (occurrence: None)
  Receive Date: 20111014
  Receipt Date: 20111007
  Transmission Date: 20120403
  Serious: Yes (Hospitalization)
  Sender: FDA-Public Use
  Company Number: 2009SP023296

PATIENT
  Age: 48 Year
  Sex: Female
  Weight: 70.3075 kg

DRUGS (5)
  1. LEVOTHYROXINE SODIUM [Concomitant]
  2. NUVARING [Suspect]
     Indication: DYSMENORRHOEA
     Dosage: 1 DF
     Dates: start: 20061101, end: 20070317
  3. NUVARING [Suspect]
     Indication: HAEMORRHAGE
     Dosage: 1 DF
     Dates: start: 20061101, end: 20070317
  4. NUVARING [Suspect]
     Indication: CONTRACEPTION
     Dosage: 1 DF
     Dates: start: 20061101, end: 20070317
  5. MAXALT [Concomitant]

REACTIONS (12)
  - PULMONARY EMBOLISM [None]
  - BARTHOLIN'S CYST [None]
  - PALLOR [None]
  - HYPOTENSION [None]
  - HYPERHIDROSIS [None]
  - CONSTIPATION [None]
  - SYNOVIAL CYST [None]
  - LEFT VENTRICULAR DYSFUNCTION [None]
  - HAEMODYNAMIC INSTABILITY [None]
  - DYSPNOEA [None]
  - ATELECTASIS [None]
  - PULMONARY HYPERTENSION [None]
